FAERS Safety Report 5147280-5 (Version None)
Quarter: 2006Q4

REPORT INFORMATION
  Report Type: 
  Country: None (occurrence: None)
  Receive Date: 20061103
  Receipt Date: 20061024
  Transmission Date: 20070319
  Serious: Yes (Death, Life-Threatening, Hospitalization)
  Sender: FDA-Public Use
  Company Number: 2006129524

PATIENT
  Age: 11 Month
  Sex: Male

DRUGS (1)
  1. NIFEDIPINE [Suspect]
     Dosage: 40MG (DAILY)ORAL
     Route: 048

REACTIONS (2)
  - ACCIDENTAL DRUG INTAKE BY CHILD [None]
  - CARDIO-RESPIRATORY ARREST [None]
